FAERS Safety Report 11415491 (Version 1)
Quarter: 2015Q3

REPORT INFORMATION
  Report Type: Spontaneous
  Country: US (occurrence: US)
  Receive Date: 20150825
  Receipt Date: 20150825
  Transmission Date: 20151125
  Serious: No
  Sender: FDA-Public Use
  Company Number: US-BRISTOL-MYERS SQUIBB COMPANY-BMS-2015-054162

PATIENT
  Sex: Female

DRUGS (1)
  1. SPRYCEL [Suspect]
     Active Substance: DASATINIB
     Indication: CHRONIC MYELOID LEUKAEMIA
     Dosage: 100 MG, QD
     Route: 048
     Dates: start: 20150714, end: 20150810

REACTIONS (6)
  - Rash [Unknown]
  - Eye pruritus [Unknown]
  - Eye swelling [Unknown]
  - Weight increased [Unknown]
  - Pharyngeal oedema [Unknown]
  - Swelling face [Unknown]
